FAERS Safety Report 25751484 (Version 1)
Quarter: 2025Q3

REPORT INFORMATION
  Report Type: Spontaneous
  Country: CN (occurrence: CN)
  Receive Date: 20250902
  Receipt Date: 20250902
  Transmission Date: 20251021
  Serious: Yes (Other)
  Sender: NOVO NORDISK
  Company Number: CN-NOVOPROD-1509374

PATIENT
  Sex: Male

DRUGS (6)
  1. NOVOLIN R [Suspect]
     Active Substance: INSULIN HUMAN
     Indication: Type 2 diabetes mellitus
     Dosage: 48 IU, QD(20U IN THE MORNING, 10U AT NOON, AND 18U IN THE EVENING)
     Dates: start: 2015
  2. NOVOLIN R [Suspect]
     Active Substance: INSULIN HUMAN
     Dosage: 17 IU, QD(14U IN THE MORNING AND 3U IN THE EVENING)
  3. NOVOLIN R [Suspect]
     Active Substance: INSULIN HUMAN
     Dosage: 8 IU, QD(IN THE MORNING)
  4. ATORVASTATIN CALCIUM [Concomitant]
     Active Substance: ATORVASTATIN CALCIUM
     Indication: Hypertension
  5. ATORVASTATIN CALCIUM [Concomitant]
     Active Substance: ATORVASTATIN CALCIUM
     Indication: Skin plaque
  6. BETALOC ZOK PLUS [Concomitant]
     Indication: Hypertension

REACTIONS (3)
  - Skin plaque [Unknown]
  - Blood glucose fluctuation [Unknown]
  - Blood glucose increased [Unknown]
